FAERS Safety Report 8278986-7 (Version None)
Quarter: 2012Q2

REPORT INFORMATION
  Report Type: 
  Country: None (occurrence: None)
  Receive Date: 20120412
  Receipt Date: 20110309
  Transmission Date: 20120825
  Serious: No
  Sender: FDA-Public Use
  Company Number: US-ASTRAZENECA-2011SE13644

PATIENT
  Age: 68 Year
  Sex: Male

DRUGS (2)
  1. NEXIUM [Suspect]
     Dosage: TWICE DAILY
     Route: 048
  2. NEXIUM [Suspect]
     Dosage: EVERY DAY
     Route: 048

REACTIONS (3)
  - BARRETT'S OESOPHAGUS [None]
  - GASTROOESOPHAGEAL REFLUX DISEASE [None]
  - DRUG EFFECT DECREASED [None]
